FAERS Safety Report 17399010 (Version 1)
Quarter: 2020Q1

REPORT INFORMATION
  Report Type: Spontaneous
  Country: US (occurrence: US)
  Receive Date: 20200210
  Receipt Date: 20200210
  Transmission Date: 20200409
  Serious: Yes (Other)
  Sender: FDA-Public Use
  Company Number: US-ABBVIE-20K-163-3266392-00

PATIENT
  Sex: Female

DRUGS (2)
  1. PROGESTERONE. [Concomitant]
     Active Substance: PROGESTERONE
     Indication: PRODUCT USED FOR UNKNOWN INDICATION
  2. ORILISSA [Suspect]
     Active Substance: ELAGOLIX SODIUM
     Indication: ENDOMETRIOSIS
     Route: 048

REACTIONS (8)
  - Nervousness [Unknown]
  - Fear [Unknown]
  - Metrorrhagia [Unknown]
  - Surgery [Unknown]
  - Adenomyosis [Unknown]
  - Intrauterine contraception [Unknown]
  - Drug ineffective [Unknown]
  - Endometriosis [Unknown]
